FAERS Safety Report 5108168-9 (Version None)
Quarter: 2006Q3

REPORT INFORMATION
  Report Type: 
  Country: None (occurrence: None)
  Receive Date: 20060915
  Receipt Date: 20060901
  Transmission Date: 20061208
  Serious: Yes (Other)
  Sender: FDA-Public Use
  Company Number: 2006US-03643

PATIENT
  Age: 41 Year
  Sex: Male

DRUGS (2)
  1. MORPHINE SULFATE [Suspect]
  2. CLONIDINE [Concomitant]

REACTIONS (16)
  - ALLODYNIA [None]
  - CATHETER RELATED COMPLICATION [None]
  - DEPRESSED MOOD [None]
  - DEVICE MIGRATION [None]
  - DRUG WITHDRAWAL SYNDROME [None]
  - FATIGUE [None]
  - GAIT DISTURBANCE [None]
  - LIFE SUPPORT [None]
  - MENTAL DISORDER [None]
  - NEURALGIA [None]
  - PHRENIC NERVE PARALYSIS [None]
  - POISONING [None]
  - RESPIRATORY ACIDOSIS [None]
  - RESPIRATORY FAILURE [None]
  - SLEEP DISORDER [None]
  - THERAPEUTIC AGENT TOXICITY [None]
